FAERS Safety Report 18706416 (Version 2)
Quarter: 2021Q1

REPORT INFORMATION
  Report Type: Spontaneous
  Country: US (occurrence: US)
  Receive Date: 20210106
  Receipt Date: 20210218
  Transmission Date: 20210419
  Serious: No
  Sender: FDA-Public Use
  Company Number: US-ELI_LILLY_AND_COMPANY-US202012005221

PATIENT
  Age: 82 Year
  Sex: Male

DRUGS (7)
  1. CYCLOSPORINE. [Concomitant]
     Active Substance: CYCLOSPORINE
  2. BAMLANIVIMAB. [Suspect]
     Active Substance: BAMLANIVIMAB
     Indication: COVID-19
     Dosage: 700 MG, SINGLE
     Route: 042
     Dates: start: 20201207, end: 20201207
  3. ELIQUIS [Concomitant]
     Active Substance: APIXABAN
  4. PREDNISONE. [Concomitant]
     Active Substance: PREDNISONE
  5. ZOLPIDEM [Concomitant]
     Active Substance: ZOLPIDEM TARTRATE
  6. ATENOLOL. [Concomitant]
     Active Substance: ATENOLOL
  7. PLAVIX [Concomitant]
     Active Substance: CLOPIDOGREL BISULFATE

REACTIONS (6)
  - Abnormal behaviour [Unknown]
  - Infusion related reaction [Unknown]
  - Tooth fracture [Unknown]
  - Pyrexia [Recovered/Resolved]
  - Asthenia [Unknown]
  - Chills [Unknown]

NARRATIVE: CASE EVENT DATE: 20201207
